FAERS Safety Report 17957475 (Version 7)
Quarter: 2024Q1

REPORT INFORMATION
  Report Type: Spontaneous
  Country: US (occurrence: US)
  Receive Date: 20200629
  Receipt Date: 20240108
  Transmission Date: 20240410
  Serious: Yes (Other)
  Sender: FDA-Public Use
  Company Number: US-PFIZER INC-2020246661

PATIENT
  Age: 69 Year
  Sex: Female
  Weight: 59.864 kg

DRUGS (3)
  1. BOSULIF [Suspect]
     Active Substance: BOSUTINIB MONOHYDRATE
     Dosage: 100 MG
     Dates: start: 20180214
  2. BOSULIF [Suspect]
     Active Substance: BOSUTINIB MONOHYDRATE
     Dosage: 100 MG
     Dates: start: 20200625
  3. BOSULIF [Suspect]
     Active Substance: BOSUTINIB MONOHYDRATE
     Dosage: 2 TABS EVERY DAY, SWALLOW WHOLE, NOT BREAK, W/FOOD, AVOID USING PROTON PUMP INHIBITORS IF POSSIBLE
     Route: 048

REACTIONS (2)
  - Crohn^s disease [Unknown]
  - Pneumonia [Unknown]
